FAERS Safety Report 9201963 (Version 1)
Quarter: 2013Q1

REPORT INFORMATION
  Report Type: Spontaneous
  Country: US (occurrence: None)
  Receive Date: 20130328
  Receipt Date: 20130328
  Transmission Date: 20140127
  Serious: Yes (Other)
  Sender: FDA-Public Use
  Company Number: 1641783

PATIENT
  Age: 62 Year
  Sex: Male

DRUGS (12)
  1. LACTATED RINGERS [Suspect]
     Route: 040
  2. LACTATED RINGERS [Suspect]
     Route: 040
  3. LIDOCAINE HCL W/EPINEPHRINE [Suspect]
     Route: 008
  4. EPINEPHRINE\LIDOCAINE HYDROCHLORIDE [Suspect]
     Route: 008
  5. EPHEDRINE SULFATE [Suspect]
  6. EPHEDRINE SULFATE [Suspect]
  7. (CEFUROXIME) [Concomitant]
  8. (ESMOLOL) [Concomitant]
  9. (FENTANYL) [Concomitant]
  10. (MIDAZOLAM) [Concomitant]
  11. (PROPOFOL) [Concomitant]
  12. (PHENYLEPHRINE) [Concomitant]

REACTIONS (3)
  - Bradycardia [None]
  - Hypotension [None]
  - Atrial fibrillation [None]
